FAERS Safety Report 11714568 (Version 5)
Quarter: 2016Q2

REPORT INFORMATION
  Report Type: Spontaneous
  Country: BR (occurrence: BR)
  Receive Date: 20151109
  Receipt Date: 20160421
  Transmission Date: 20160815
  Serious: Yes (Hospitalization, Other)
  Sender: FDA-Public Use
  Company Number: AU-PURDUE PHARMA-GBR-2015-0031935

PATIENT
  Age: 63 Year
  Sex: Female
  Weight: 81 kg

DRUGS (13)
  1. BUPRENORPHINE. [Suspect]
     Active Substance: BUPRENORPHINE
     Indication: BACK PAIN
     Dosage: 10 MCG, Q1H
     Route: 062
     Dates: start: 2014, end: 201511
  2. ATENSINA [Concomitant]
     Active Substance: CLONIDINE
     Indication: HYPERTENSION
     Dosage: 0.200 MG, TID
     Route: 048
  3. CIPROFIBRATO [Concomitant]
     Active Substance: CIPROFIBRATE
     Indication: BLOOD TRIGLYCERIDES ABNORMAL
     Dosage: 100 MG, DAILY
     Route: 048
  4. PURAN [Concomitant]
     Active Substance: LEVOTHYROXINE SODIUM
     Indication: HYPOTHYROIDISM
     Dosage: 100 MG, DAILY
     Route: 048
  5. GABAPENTIN. [Concomitant]
     Active Substance: GABAPENTIN
     Indication: BACK PAIN
     Dosage: 600 MG, DAILY
     Route: 048
  6. HUMULIN NOS [Concomitant]
     Active Substance: INSULIN HUMAN
     Indication: DIABETES MELLITUS
     Dosage: 1 APPLICATION 2X/DAY
     Route: 058
  7. SIMVASTATIN. [Concomitant]
     Active Substance: SIMVASTATIN
     Indication: BLOOD TRIGLYCERIDES
     Dosage: 10 MG, DAILY
     Route: 048
  8. TRAMADON [Concomitant]
     Indication: BACK PAIN
     Dosage: 100 MG, DAILY
     Route: 048
  9. FUROSEMIDE. [Concomitant]
     Active Substance: FUROSEMIDE
     Indication: HYPERTENSION
     Dosage: 80 MG, DAILY
     Route: 048
  10. HUMULIN R [Concomitant]
     Active Substance: INSULIN HUMAN
     Indication: DIABETES MELLITUS
     Dosage: UNK, PRN
     Route: 058
  11. ENALAPRIL [Concomitant]
     Active Substance: ENALAPRIL
     Indication: HYPERTENSION
     Dosage: 20 MG, BID
     Route: 048
     Dates: start: 2002
  12. MANIVASC [Concomitant]
     Active Substance: MANIDIPINE HYDROCHLORIDE
     Indication: HYPERTENSION
     Dosage: 10 MG, BID
     Route: 048
  13. CANDESARTAN CILEXETIL. [Concomitant]
     Active Substance: CANDESARTAN CILEXETIL
     Indication: HYPERTENSION
     Dosage: 16 MG, DAILY
     Route: 048

REACTIONS (14)
  - Hypertensive crisis [Recovered/Resolved]
  - Dyspnoea [Recovered/Resolved]
  - Peripheral swelling [Recovered/Resolved]
  - Dermatitis contact [Recovered/Resolved]
  - Application site erythema [Recovered/Resolved]
  - Dehydration [Recovered/Resolved]
  - Application site pruritus [Recovered/Resolved]
  - Dehydration [Recovered/Resolved]
  - Weight decreased [Recovered/Resolved]
  - Sinusitis [Recovered/Resolved]
  - Application site pruritus [Recovered/Resolved]
  - Chronic kidney disease [Recovered/Resolved]
  - Chronic kidney disease [Recovered/Resolved]
  - Drug administered at inappropriate site [Recovered/Resolved]

NARRATIVE: CASE EVENT DATE: 2014
